FAERS Safety Report 10881799 (Version 1)
Quarter: 2015Q1

REPORT INFORMATION
  Report Type: Spontaneous
  Country: US (occurrence: None)
  Receive Date: 20150225
  Receipt Date: 20150225
  Transmission Date: 20150721
  Serious: Yes (Hospitalization)
  Sender: FDA-Public Use
  Company Number: None

PATIENT
  Age: 63 Year
  Sex: Female
  Weight: 67.59 kg

DRUGS (2)
  1. SUPREP BOWEL PREP [Suspect]
     Active Substance: MAGNESIUM SULFATE\POTASSIUM SULFATE\SODIUM SULFATE
     Indication: BOWEL PREPARATION
     Dosage: H2O TAKE BOTH BOTTLES, TAKEN BY MOUTH
     Dates: start: 20150218, end: 20150218
  2. SUPREP BOWEL PREP [Suspect]
     Active Substance: MAGNESIUM SULFATE\POTASSIUM SULFATE\SODIUM SULFATE
     Indication: COLONOSCOPY
     Dosage: H2O TAKE BOTH BOTTLES, TAKEN BY MOUTH
     Dates: start: 20150218, end: 20150218

REACTIONS (6)
  - Loss of consciousness [None]
  - Tachycardia [None]
  - Impaired work ability [None]
  - Ankle fracture [None]
  - Troponin increased [None]
  - Dehydration [None]

NARRATIVE: CASE EVENT DATE: 20150219
